FAERS Safety Report 6545045-0 (Version None)
Quarter: 2010Q1

REPORT INFORMATION
  Report Type: 
  Country: None (occurrence: None)
  Receive Date: 20100121
  Receipt Date: 20100114
  Transmission Date: 20100710
  Serious: Yes (Hospitalization)
  Sender: FDA-Public Use
  Company Number: B0626467A

PATIENT
  Sex: Female
  Weight: 59 kg

DRUGS (6)
  1. LAPATINIB [Suspect]
     Indication: BREAST CANCER
     Dosage: 1000MG PER DAY
     Route: 048
     Dates: start: 20090929
  2. TRASTUZUMAB [Suspect]
     Indication: BREAST CANCER
     Route: 042
     Dates: start: 20090929
  3. PACLITAXEL [Suspect]
     Indication: BREAST CANCER
     Dosage: 80MGM2 PER DAY
     Route: 042
     Dates: start: 20090929
  4. PENSTAPHO [Concomitant]
     Indication: CELLULITIS
     Dosage: 2G FOUR TIMES PER DAY
     Route: 048
     Dates: start: 20100113
  5. AUGMENTIN [Concomitant]
     Indication: CELLULITIS
     Dosage: 875MG THREE TIMES PER DAY
     Route: 048
     Dates: start: 20100111, end: 20100113
  6. DAFALGAN [Concomitant]
     Indication: PAIN
     Dosage: 1G FOUR TIMES PER DAY
     Route: 048
     Dates: start: 20100111

REACTIONS (1)
  - CELLULITIS [None]
